FAERS Safety Report 8460297-8 (Version None)
Quarter: 2012Q2

REPORT INFORMATION
  Report Type: 
  Country: None (occurrence: None)
  Receive Date: 20120622
  Receipt Date: 20120613
  Transmission Date: 20120825
  Serious: Yes (Hospitalization)
  Sender: FDA-Public Use
  Company Number: US-ACTELION-A-NJ2012-66817

PATIENT

DRUGS (3)
  1. TRACLEER [Suspect]
     Indication: PULMONARY ARTERIAL HYPERTENSION
     Dosage: 15 MG, BID
     Route: 048
     Dates: start: 20120531, end: 20120605
  2. REVATIO [Concomitant]
  3. TRACLEER [Suspect]
     Dosage: 15 MG, QD
     Route: 048
     Dates: start: 20120607

REACTIONS (6)
  - OCULAR HYPERAEMIA [None]
  - SLUGGISHNESS [None]
  - TONGUE DISORDER [None]
  - DROOLING [None]
  - RETCHING [None]
  - SALIVARY HYPERSECRETION [None]
